FAERS Safety Report 5073786-3 (Version None)
Quarter: 2006Q3

REPORT INFORMATION
  Report Type: 
  Country: None (occurrence: None)
  Receive Date: 20060808
  Receipt Date: 20050512
  Transmission Date: 20061208
  Serious: No
  Sender: FDA-Public Use
  Company Number: US-AMGEN-US132799

PATIENT
  Sex: Female

DRUGS (3)
  1. ARANESP [Suspect]
     Indication: RENAL FAILURE CHRONIC
     Dates: start: 20050101
  2. EPOGEN [Suspect]
     Indication: DIALYSIS
     Dates: start: 20050401
  3. PREDNISONE [Concomitant]

REACTIONS (4)
  - BONE PAIN [None]
  - DYSPNOEA [None]
  - PYREXIA [None]
  - WHEEZING [None]
